FAERS Safety Report 24040721 (Version 1)
Quarter: 2024Q3

REPORT INFORMATION
  Report Type: Spontaneous
  Country: US (occurrence: US)
  Receive Date: 20240702
  Receipt Date: 20240702
  Transmission Date: 20241017
  Serious: No
  Sender: ROCHE
  Company Number: US-ROCHE-10000010869

PATIENT
  Age: 64 Year
  Sex: Male

DRUGS (1)
  1. ALECTINIB [Suspect]
     Active Substance: ALECTINIB
     Indication: Metastatic renal cell carcinoma
     Route: 065

REACTIONS (1)
  - Hypertransaminasaemia [Recovered/Resolved]
